FAERS Safety Report 14602412 (Version 1)
Quarter: 2018Q1

REPORT INFORMATION
  Report Type: Spontaneous
  Country: US (occurrence: US)
  Receive Date: 20180306
  Receipt Date: 20180306
  Transmission Date: 20180509
  Serious: No
  Sender: FDA-Public Use
  Company Number: US-PFIZER INC-2018090139

PATIENT
  Age: 65 Year
  Sex: Female
  Weight: 64.85 kg

DRUGS (1)
  1. XELJANZ XR [Suspect]
     Active Substance: TOFACITINIB CITRATE
     Indication: PSORIATIC ARTHROPATHY
     Dosage: 11 MG, DAILY (TAKE 1 TABLET DAILY)
     Route: 048
     Dates: start: 201802

REACTIONS (1)
  - Nausea [Unknown]
